FAERS Safety Report 6582347-6 (Version None)
Quarter: 2010Q1

REPORT INFORMATION
  Report Type: 
  Country: None (occurrence: None)
  Receive Date: 20100212
  Receipt Date: 20100212
  Transmission Date: 20100710
  Serious: Yes (Hospitalization)
  Sender: FDA-Public Use
  Company Number: None

PATIENT
  Age: 65 Year
  Sex: Male
  Weight: 86.7 kg

DRUGS (2)
  1. PEGINTERFERON [Suspect]
     Indication: HEPATITIS C
     Dosage: 180 MG QWEEK SQ
     Route: 058
     Dates: start: 20071002, end: 20080714
  2. RIBAVIRIN [Suspect]
     Indication: HEPATITIS C
     Dosage: 180 MG QWEEK SQ
     Route: 058
     Dates: start: 20071002, end: 20080606

REACTIONS (1)
  - ANAEMIA HAEMOLYTIC AUTOIMMUNE [None]
